FAERS Safety Report 23607630 (Version 1)
Quarter: 2024Q1

REPORT INFORMATION
  Report Type: Spontaneous
  Country: US (occurrence: None)
  Receive Date: 20240307
  Receipt Date: 20240307
  Transmission Date: 20240410
  Serious: Yes (Hospitalization, Other)
  Sender: FDA-Public Use
  Company Number: None

PATIENT
  Age: 79 Year
  Sex: Female
  Weight: 58 kg

DRUGS (8)
  1. JARDIANCE [Suspect]
     Active Substance: EMPAGLIFLOZIN
     Indication: Type 2 diabetes mellitus
     Dosage: FREQUENCY : DAILY;?
     Route: 048
     Dates: start: 20221228, end: 20240102
  2. ALPRAZOLAM [Concomitant]
     Dates: start: 20130522
  3. ATORVASTATIN [Concomitant]
     Dates: start: 20231213
  4. GABAPENTIN [Concomitant]
     Active Substance: GABAPENTIN
     Dates: start: 20121220
  5. HYDROCHLOROTHIAZIDE\LISINOPRIL [Concomitant]
     Active Substance: HYDROCHLOROTHIAZIDE\LISINOPRIL
     Dates: start: 20121027
  6. METFORMIN ER [Concomitant]
     Dates: start: 20120927
  7. MIDODRINE [Concomitant]
     Active Substance: MIDODRINE
     Dates: start: 20231209
  8. VENLAFAXINE [Concomitant]
     Dates: start: 20121027

REACTIONS (3)
  - Fall [None]
  - Euglycaemic diabetic ketoacidosis [None]
  - Illness [None]

NARRATIVE: CASE EVENT DATE: 20240102
